FAERS Safety Report 8197063-7 (Version None)
Quarter: 2012Q1

REPORT INFORMATION
  Report Type: 
  Country: None (occurrence: None)
  Receive Date: 20120309
  Receipt Date: 20120307
  Transmission Date: 20120608
  Serious: Yes (Other)
  Sender: FDA-Public Use
  Company Number: US-PFIZER INC-2012061784

PATIENT
  Sex: Female
  Weight: 81.633 kg

DRUGS (3)
  1. NARDIL [Suspect]
     Indication: DEPRESSION
     Dosage: 120 MG, UNK
     Route: 048
  2. NARDIL [Suspect]
     Indication: SOCIAL PHOBIA
  3. ACTIFED [Suspect]
     Route: 048

REACTIONS (4)
  - HYPERTENSIVE CRISIS [None]
  - HEADACHE [None]
  - FEAR [None]
  - ACCIDENTAL EXPOSURE [None]
